FAERS Safety Report 4363299-6 (Version None)
Quarter: 2004Q2

REPORT INFORMATION
  Report Type: 
  Country: None (occurrence: None)
  Receive Date: 20040519
  Receipt Date: 20040505
  Transmission Date: 20050107
  Serious: Yes (Other)
  Sender: FDA-Public Use
  Company Number: 207638

PATIENT
  Age: 14 Year
  Sex: Female
  Weight: 66 kg

DRUGS (2)
  1. NORDITROPIN [Suspect]
     Indication: TURNER'S SYNDROME
     Dosage: 10.5 IU, QD, SUBCUTANEOUS
     Route: 058
     Dates: start: 19891229
  2. ESTRADIOL [Concomitant]

REACTIONS (2)
  - AORTIC VALVE STENOSIS [None]
  - CONDITION AGGRAVATED [None]
